FAERS Safety Report 4616370-5 (Version None)
Quarter: 2005Q1

REPORT INFORMATION
  Report Type: 
  Country: None (occurrence: None)
  Receive Date: 20050321
  Receipt Date: 20050307
  Transmission Date: 20050727
  Serious: Yes (Other)
  Sender: FDA-Public Use
  Company Number: CIP05000509

PATIENT
  Age: 73 Year
  Sex: Female

DRUGS (1)
  1. ACTONEL [Suspect]
     Dosage: 35 MG ONCE WEEKLY, ORAL
     Route: 048
     Dates: start: 20030101

REACTIONS (4)
  - ARTHRALGIA [None]
  - ARTHRITIS [None]
  - CONDITION AGGRAVATED [None]
  - DIFFICULTY IN WALKING [None]
